FAERS Safety Report 6250064-8 (Version None)
Quarter: 2009Q2

REPORT INFORMATION
  Report Type: 
  Country: None (occurrence: None)
  Receive Date: 20090625
  Receipt Date: 20090618
  Transmission Date: 20091009
  Serious: Yes (Other)
  Sender: FDA-Public Use
  Company Number: 1000006981

PATIENT
  Age: 29 Year
  Sex: Female
  Weight: 70 kg

DRUGS (4)
  1. ESCITALOPRAM [Suspect]
     Dosage: 10 TABLETS, ORAL
     Route: 048
     Dates: start: 20090618, end: 20090618
  2. TRUXAL (TABLETS) [Suspect]
     Dosage: 500 MG (50 MG, 10 IN 1 D)
     Dates: start: 20090618, end: 20090618
  3. SEROQUEL [Suspect]
     Dosage: 10 TABLETS
     Dates: start: 20090618, end: 20090618
  4. ALCOHOL [Suspect]
     Dosage: ORAL
     Route: 048
     Dates: start: 20090618, end: 20090618

REACTIONS (4)
  - ALCOHOL POISONING [None]
  - MULTIPLE DRUG OVERDOSE INTENTIONAL [None]
  - SUICIDE ATTEMPT [None]
  - TACHYCARDIA [None]
